FAERS Safety Report 6508240-2 (Version None)
Quarter: 2009Q4

REPORT INFORMATION
  Report Type: 
  Country: None (occurrence: None)
  Receive Date: 20091221
  Receipt Date: 20081209
  Transmission Date: 20100525
  Serious: No
  Sender: FDA-Public Use
  Company Number: US-ASTRAZENECA-2008UW27369

PATIENT
  Age: 67 Year
  Sex: Male
  Weight: 82.6 kg

DRUGS (4)
  1. CRESTOR [Suspect]
     Route: 048
  2. ATENOLOL [Concomitant]
  3. COZAAR [Concomitant]
  4. PREVACID [Concomitant]

REACTIONS (1)
  - FLATULENCE [None]
